FAERS Safety Report 22087976 (Version 3)
Quarter: 2023Q1

REPORT INFORMATION
  Report Type: Other
  Country: US (occurrence: None)
  Receive Date: 20230313
  Receipt Date: 20230328
  Transmission Date: 20230418
  Serious: No
  Sender: FDA-Public Use
  Company Number: US-ROCHE-3306297

PATIENT
  Age: 56 Year
  Sex: Female
  Weight: 73.548 kg

DRUGS (2)
  1. OCREVUS [Suspect]
     Active Substance: OCRELIZUMAB
     Indication: Relapsing-remitting multiple sclerosis
     Dosage: INFUSE 300 MG ON DAY 1 AND DAY 15, INFUSE 600 MG EVERY 6 MONTHS, DOT: 2021-08-30?DATE OF MOST RECENT
     Route: 042
     Dates: start: 20210816, end: 20220817
  2. KESIMPTA [Concomitant]
     Active Substance: OFATUMUMAB

REACTIONS (5)
  - COVID-19 [Not Recovered/Not Resolved]
  - Dyspnoea [Recovering/Resolving]
  - Rash [Recovered/Resolved]
  - Cough [Recovered/Resolved]
  - Asthma [Recovering/Resolving]

NARRATIVE: CASE EVENT DATE: 20211231
